FAERS Safety Report 13971984 (Version 1)
Quarter: 2017Q3

REPORT INFORMATION
  Report Type: Spontaneous
  Country: US (occurrence: US)
  Receive Date: 20170915
  Receipt Date: 20170915
  Transmission Date: 20171128
  Serious: Yes (Disabling)
  Sender: FDA-Public Use
  Company Number: None

PATIENT
  Age: 40 Year
  Sex: Female
  Weight: 86.85 kg

DRUGS (3)
  1. SULFAMETH/TMP 800/160MG TB [Suspect]
     Active Substance: SULFAMETHOXAZOLE\TRIMETHOPRIM
     Indication: URINARY TRACT INFECTION
     Dosage: ?          QUANTITY:1 TABLET(S);?
     Route: 048
     Dates: start: 20170903, end: 20170907
  2. VIT D-3 [Concomitant]
  3. VIT B-12 [Concomitant]

REACTIONS (1)
  - Ligament sprain [None]

NARRATIVE: CASE EVENT DATE: 20170914
